FAERS Safety Report 16958989 (Version 1)
Quarter: 2019Q4

REPORT INFORMATION
  Report Type: Spontaneous
  Country: GR (occurrence: GR)
  Receive Date: 20191024
  Receipt Date: 20191024
  Transmission Date: 20200122
  Serious: Yes (Other)
  Sender: FDA-Public Use
  Company Number: GR-GILEAD-2019-0434587

PATIENT
  Age: 60 Year
  Sex: Male

DRUGS (3)
  1. RANOLAZINE. [Suspect]
     Active Substance: RANOLAZINE
     Indication: CONGESTIVE CARDIOMYOPATHY
     Dosage: UNK
     Route: 065
  2. AMIODARONE [Concomitant]
     Active Substance: AMIODARONE
     Indication: CONGESTIVE CARDIOMYOPATHY
  3. MEXILETINE [Concomitant]
     Active Substance: MEXILETINE
     Indication: CONGESTIVE CARDIOMYOPATHY

REACTIONS (2)
  - Off label use [Unknown]
  - Ventricular arrhythmia [Unknown]

NARRATIVE: CASE EVENT DATE: 2019
